FAERS Safety Report 5802807-2 (Version None)
Quarter: 2008Q3

REPORT INFORMATION
  Report Type: 
  Country: None (occurrence: None)
  Receive Date: 20080708
  Receipt Date: 20080629
  Transmission Date: 20090109
  Serious: Yes (Hospitalization)
  Sender: FDA-Public Use
  Company Number: US-AMGEN-QUU290918

PATIENT
  Sex: Female

DRUGS (2)
  1. ENBREL [Suspect]
     Indication: RHEUMATOID ARTHRITIS
     Route: 058
     Dates: start: 20080520
  2. METHOTREXATE [Concomitant]

REACTIONS (3)
  - FALL [None]
  - LOWER LIMB FRACTURE [None]
  - WRIST FRACTURE [None]
